FAERS Safety Report 24557120 (Version 2)
Quarter: 2025Q1

REPORT INFORMATION
  Report Type: Spontaneous
  Country: BR (occurrence: BR)
  Receive Date: 20241028
  Receipt Date: 20250110
  Transmission Date: 20250408
  Serious: Yes (Other)
  Sender: EXELIXIS
  Company Number: BR-IPSEN Group, Research and Development-2024-21001

PATIENT
  Age: 63 Year
  Sex: Male
  Weight: 75 kg

DRUGS (11)
  1. CABOMETYX [Suspect]
     Active Substance: CABOZANTINIB S-MALATE
     Indication: Clear cell renal cell carcinoma
     Route: 048
     Dates: start: 20220816
  2. GLICLAZIDE [Concomitant]
     Active Substance: GLICLAZIDE
     Indication: Diabetes mellitus
  3. SYNTHROID [Concomitant]
     Active Substance: LEVOTHYROXINE SODIUM
     Indication: Thyroid disorder
  4. PANTOPRAZOLE [Concomitant]
     Active Substance: PANTOPRAZOLE
     Indication: Gastrointestinal disorder
  5. LINAGLIPTIN [Concomitant]
     Active Substance: LINAGLIPTIN
  6. CALCIUM [Concomitant]
     Active Substance: CALCIUM
     Indication: Blood calcium decreased
     Dosage: (START OF TREATMENT 8 YEARS AGO)
  7. CHOLECALCIFEROL [Concomitant]
     Active Substance: CHOLECALCIFEROL
     Indication: Blood calcium decreased
     Dosage: 1 [IU], QD(START OF TREATMENT 8 YEARS AGO)
  8. LOSARTAN POTASSIUM [Concomitant]
     Active Substance: LOSARTAN POTASSIUM
     Indication: Lung disorder
  9. LOSARTAN POTASSIUM [Concomitant]
     Active Substance: LOSARTAN POTASSIUM
     Indication: Cardiac disorder
  10. OMEGA 3 [Concomitant]
     Active Substance: CAPSAICIN
     Indication: Memory impairment
  11. COZAAR [Concomitant]
     Active Substance: LOSARTAN POTASSIUM
     Indication: Blood cholesterol
     Dosage: (SIMVASTATIN + EZETIMIBE) 10MG/20MG DOSAGE: ONCE DAILY (START OF TREATMENT 8 YEARS AGO)

REACTIONS (12)
  - Urinary retention [Unknown]
  - Diabetes mellitus [Unknown]
  - Cholecystectomy [Unknown]
  - Memory impairment [Not Recovered/Not Resolved]
  - Oral disorder [Unknown]
  - Dengue fever [Unknown]
  - COVID-19 [Unknown]
  - Skin lesion [Unknown]
  - Feeling abnormal [Unknown]
  - Fatigue [Not Recovered/Not Resolved]
  - Weight decreased [Unknown]
  - Off label use [Unknown]

NARRATIVE: CASE EVENT DATE: 20220801
